FAERS Safety Report 24376437 (Version 2)
Quarter: 2024Q4

REPORT INFORMATION
  Report Type: Report from Study
  Country: US (occurrence: US)
  Receive Date: 20240930
  Receipt Date: 20241023
  Transmission Date: 20250115
  Serious: No
  Sender: ACADIA PHARMACEUTICALS
  Company Number: US-ACADIA PHARMACEUTICALS INC.-ACA-2024-PIM-005766

PATIENT
  Sex: Female

DRUGS (24)
  1. NUPLAZID [Suspect]
     Active Substance: PIMAVANSERIN TARTRATE
     Indication: Parkinson^s disease psychosis
     Dosage: 34 MILLIGRAM, QD
     Route: 048
  2. NUPLAZID [Suspect]
     Active Substance: PIMAVANSERIN TARTRATE
     Indication: Behaviour disorder
  3. NUPLAZID [Suspect]
     Active Substance: PIMAVANSERIN TARTRATE
     Indication: Hallucination
  4. LIPITOR [Concomitant]
     Active Substance: ATORVASTATIN CALCIUM
     Dosage: 20 MILLIGRAM, NIGHTLY
     Route: 048
  5. RYTARY [Concomitant]
     Active Substance: CARBIDOPA\LEVODOPA
     Dosage: 61.25-245 MG, FIVE TIMES A DAY
     Route: 048
  6. ZETIA [Concomitant]
     Active Substance: EZETIMIBE
     Dosage: 10 MILLIGRAM, QD
     Route: 048
  7. LATANOPROST [Concomitant]
     Active Substance: LATANOPROST
     Dosage: 0.005% DROPS, APPLY 1 DROP TO EYE NIGHTLY
  8. SYNTHROID [Concomitant]
     Active Substance: LEVOTHYROXINE SODIUM
     Dosage: 88 MICROGRAM, EVERY MORNING
     Route: 048
  9. DITROPAN [Concomitant]
     Active Substance: OXYBUTYNIN CHLORIDE
     Dosage: 5 MILLIGRAM, BID
     Route: 048
  10. EXELON [Concomitant]
     Active Substance: RIVASTIGMINE TARTRATE
     Dosage: 3 MILLIGRAM, BID
     Route: 048
  11. MINERALS\VITAMINS [Concomitant]
     Active Substance: MINERALS\VITAMINS
     Dosage: 1 TABLET
     Route: 048
  12. TYLENOL [Concomitant]
     Active Substance: ACETAMINOPHEN
     Indication: Pyrexia
     Dosage: 325 MILLIGRAM, TOTAL BY MOUTH EVERY 6 (SIX) HOURS AS NEEDED
  13. ZOLOFT [Concomitant]
     Active Substance: SERTRALINE HYDROCHLORIDE
     Dosage: 50 MILLIGRAM, QD
     Route: 048
  14. CALCIUM CARBONATE\CHOLECALCIFEROL [Concomitant]
     Active Substance: CALCIUM CARBONATE\CHOLECALCIFEROL
     Dosage: 3 TABLETS
     Route: 048
  15. PROLIA [Concomitant]
     Active Substance: DENOSUMAB
     Dosage: 60 MG/ML, 60 MG TOTAL) UNDER THE SKIN EVERY 6 (SIX) MONTHS
  16. SENOKOT-S [Concomitant]
     Active Substance: DOCUSATE SODIUM\SENNOSIDES
     Dosage: 8.6-50 MG, ONE TABLET AS NEEDED
     Route: 048
  17. INDERAL [Concomitant]
     Active Substance: PROPRANOLOL HYDROCHLORIDE
     Dosage: 10 MILLIGRAM, BID AS NEEDED
     Route: 048
  18. ECOTRIN [Concomitant]
     Active Substance: ASPIRIN
     Dosage: 81 MILLIGRAM, QD
     Route: 048
  19. PROAIR HFA [Concomitant]
     Active Substance: ALBUTEROL SULFATE
     Indication: Wheezing
     Dosage: 90 MICROGRAM, INHALE 2 PUFFS EVERY 6 (SIX) HOURS AS NEEDED
  20. PROVENTIL HFA [Concomitant]
     Active Substance: ALBUTEROL SULFATE
     Indication: Wheezing
     Dosage: 90 MICROGRAM, INHALE 2 PUFFS EVERY 6 (SIX) HOURS AS NEEDED
  21. VENTOLIN HFA [Concomitant]
     Active Substance: ALBUTEROL SULFATE
     Indication: Wheezing
     Dosage: 90 MICROGRAM,INHALE 2 PUFFS EVERY 6 (SIX) HOURS AS NEEDED
  22. CYANOCOBALAMIN [Concomitant]
     Active Substance: CYANOCOBALAMIN
     Dosage: 500 MICROGRAM, QD
     Route: 048
  23. LUMIGAN [Concomitant]
     Active Substance: BIMATOPROST
     Dosage: 0.03 %,ADMINISTER 1 DROP TO BOTH EYES NIGHTLY
  24. CYANOCOBALAMIN [Concomitant]
     Active Substance: CYANOCOBALAMIN
     Dosage: 1 MILLILITER, QD

REACTIONS (1)
  - Intentional dose omission [Recovered/Resolved]
